FAERS Safety Report 20460060 (Version 2)
Quarter: 2022Q1

REPORT INFORMATION
  Report Type: Other
  Country: NL (occurrence: NL)
  Receive Date: 20220211
  Receipt Date: 20220303
  Transmission Date: 20220423
  Serious: Yes (Death, Life-Threatening, Hospitalization, Other)
  Sender: FDA-Public Use
  Company Number: None

PATIENT

DRUGS (2)
  1. ROSUVASTATIN CALCIUM [Suspect]
     Active Substance: ROSUVASTATIN CALCIUM
     Indication: Dizziness
     Dosage: 1 DOSAGE FORM, QD (1X PER DAG)
     Route: 065
     Dates: start: 202111
  2. CLOPIDOGREL [Suspect]
     Active Substance: CLOPIDOGREL BISULFATE
     Indication: Intermittent claudication
     Dosage: 1 DOSAGE FORM, QD (1X PER DAG)
     Route: 065
     Dates: start: 2020

REACTIONS (1)
  - Cerebral haemorrhage [Fatal]

NARRATIVE: CASE EVENT DATE: 20211228
